FAERS Safety Report 5026016-2 (Version None)
Quarter: 2006Q2

REPORT INFORMATION
  Report Type: 
  Country: None (occurrence: None)
  Receive Date: 20060614
  Receipt Date: 20060510
  Transmission Date: 20061013
  Serious: Yes (Other)
  Sender: FDA-Public Use
  Company Number: US-ROCHE-447750

PATIENT
  Age: 25 Year
  Sex: Female

DRUGS (1)
  1. ACCUTANE [Suspect]
     Indication: DRUG USE FOR UNKNOWN INDICATION
     Dosage: MOTHER PUNCTURED HERSELF MULTIPLE TIMES WHILE ADMINISTERING THE MEDICATION TO SOMEONE ELSE.
     Route: 050
     Dates: start: 20060315, end: 20060315

REACTIONS (3)
  - ACCIDENTAL EXPOSURE [None]
  - NO ADVERSE EFFECT [None]
  - PREGNANCY [None]
